FAERS Safety Report 6790467-6 (Version None)
Quarter: 2010Q2

REPORT INFORMATION
  Report Type: 
  Country: None (occurrence: None)
  Receive Date: 20100624
  Receipt Date: 20100616
  Transmission Date: 20101027
  Serious: Yes (Hospitalization)
  Sender: FDA-Public Use
  Company Number: US-BAXTER-2010BH016024

PATIENT
  Age: 56 Year
  Sex: Male

DRUGS (3)
  1. DIANEAL [Suspect]
     Indication: PERITONEAL DIALYSIS
     Route: 033
  2. DIANEAL [Suspect]
     Indication: PERITONEAL DIALYSIS
     Route: 033
  3. COUMADIN [Suspect]
     Indication: CARDIAC DISORDER
     Route: 065

REACTIONS (2)
  - BLOODY PERITONEAL EFFLUENT [None]
  - DYSPNOEA [None]
